FAERS Safety Report 5143847-9 (Version None)
Quarter: 2006Q4

REPORT INFORMATION
  Report Type: 
  Country: None (occurrence: None)
  Receive Date: 20061106
  Receipt Date: 20061026
  Transmission Date: 20070319
  Serious: Yes (Other)
  Sender: FDA-Public Use
  Company Number: PHFR2006GB03216

PATIENT

DRUGS (1)
  1. CLOZARIL [Suspect]
     Route: 065

REACTIONS (2)
  - BLOOD GLUCOSE INCREASED [None]
  - BLOOD PROLACTIN INCREASED [None]
